FAERS Safety Report 23518375 (Version 4)
Quarter: 2024Q1

REPORT INFORMATION
  Report Type: Spontaneous
  Country: JP (occurrence: JP)
  Receive Date: 20240213
  Receipt Date: 20240311
  Transmission Date: 20240410
  Serious: Yes (Hospitalization)
  Sender: FDA-Public Use
  Company Number: JP-Eisai-202313747_LEN-RCC_P_1

PATIENT
  Age: 56 Year

DRUGS (4)
  1. LENVIMA [Suspect]
     Active Substance: LENVATINIB
     Indication: Clear cell papillary renal cell carcinoma
     Dosage: DOSE AND FREQUENCY UNKNOWN
     Route: 048
  2. LENVIMA [Suspect]
     Active Substance: LENVATINIB
     Route: 048
  3. LENVIMA [Suspect]
     Active Substance: LENVATINIB
     Route: 048
  4. KEYTRUDA [Suspect]
     Active Substance: PEMBROLIZUMAB
     Indication: Clear cell papillary renal cell carcinoma
     Route: 041

REACTIONS (2)
  - Interstitial lung disease [Recovering/Resolving]
  - Protein urine present [Unknown]

NARRATIVE: CASE EVENT DATE: 20240201
